FAERS Safety Report 7741997-1 (Version None)
Quarter: 2011Q3

REPORT INFORMATION
  Report Type: 
  Country: None (occurrence: None)
  Receive Date: 20110912
  Receipt Date: 20110830
  Transmission Date: 20111222
  Serious: Yes (Other)
  Sender: FDA-Public Use
  Company Number: MX-UCBSA-040454

PATIENT
  Sex: Female
  Weight: 64 kg

DRUGS (3)
  1. VIMPAT [Suspect]
     Indication: EPILEPSY
     Dosage: INITIATED ON 25/JUL/2011;DOSE PER INTAKE:50 MG , 2 TIMES EVERY 1 DAY,TOTAL DAILY DOSE:100 MG
     Route: 048
     Dates: start: 20110801, end: 20110807
  2. CARBAMAZEPINE [Concomitant]
     Indication: EPILEPSY
     Route: 048
     Dates: start: 20100417
  3. MAGNESIUM VALPROATE [Concomitant]
     Indication: EPILEPSY
     Route: 048
     Dates: start: 20090417

REACTIONS (2)
  - CONVULSION [None]
  - INSOMNIA [None]
